FAERS Safety Report 10132335 (Version 1)
Quarter: 2014Q2

REPORT INFORMATION
  Report Type: Spontaneous
  Country: GR (occurrence: GR)
  Receive Date: 20140428
  Receipt Date: 20140428
  Transmission Date: 20141212
  Serious: Yes (Hospitalization)
  Sender: FDA-Public Use
  Company Number: GR-ABBVIE-14P-066-1227244-00

PATIENT
  Age: 16 Year
  Sex: Female

DRUGS (4)
  1. HUMIRA [Suspect]
     Indication: CROHN^S DISEASE
     Route: 058
     Dates: start: 20101221, end: 20130318
  2. HUMIRA [Suspect]
     Dates: start: 20131004, end: 20140111
  3. HUMIRA [Suspect]
     Dosage: LOADING DOSE WEEK 1
     Dates: start: 20140326, end: 20140326
  4. HUMIRA [Suspect]
     Dates: start: 201404

REACTIONS (3)
  - Fistula [Recovered/Resolved]
  - Crohn^s disease [Recovered/Resolved]
  - Abscess [Recovered/Resolved]
